FAERS Safety Report 21157247 (Version 1)
Quarter: 2022Q3

REPORT INFORMATION
  Report Type: Spontaneous
  Country: US (occurrence: None)
  Receive Date: 20220729
  Receipt Date: 20220729
  Transmission Date: 20221026
  Serious: Yes (Disabling)
  Sender: FDA-Public Use
  Company Number: None

PATIENT
  Age: 50 Year
  Sex: Female
  Weight: 94.5 kg

DRUGS (4)
  1. TERBINAFINE HYDROCHLORIDE [Suspect]
     Active Substance: TERBINAFINE HYDROCHLORIDE
     Indication: Fungal infection
     Dosage: OTHER QUANTITY : 1 TABLET(S);?FREQUENCY : DAILY;?
     Route: 048
     Dates: start: 20220715, end: 20220727
  2. TERBINAFINE HYDROCHLORIDE [Suspect]
     Active Substance: TERBINAFINE HYDROCHLORIDE
     Indication: Fungal infection
  3. Complex B vitamin [Concomitant]
  4. Vitamin D with K2 [Concomitant]

REACTIONS (6)
  - Skin infection [None]
  - Vaginal infection [None]
  - Chromaturia [None]
  - Back pain [None]
  - Drug ineffective [None]
  - Manufacturing issue [None]

NARRATIVE: CASE EVENT DATE: 20220715
